FAERS Safety Report 7049844-0 (Version None)
Quarter: 2010Q4

REPORT INFORMATION
  Report Type: 
  Country: None (occurrence: None)
  Receive Date: 20101018
  Receipt Date: 20101005
  Transmission Date: 20110411
  Serious: Yes (Other)
  Sender: FDA-Public Use
  Company Number: US-BAYER-201036710NA

PATIENT
  Sex: Female

DRUGS (1)
  1. MIRENA [Suspect]
     Indication: PRODUCT USED FOR UNKNOWN INDICATION
     Dosage: FREQUENCY: CONTINUOUS. IT WAS REPORTE THAT THE FLANGE ON THE MIRENA SEEMED A LITTLE MORE STIFF
     Route: 015

REACTIONS (1)
  - DEVICE DISLOCATION [None]
